FAERS Safety Report 5810944-1 (Version None)
Quarter: 2008Q3

REPORT INFORMATION
  Report Type: 
  Country: None (occurrence: None)
  Receive Date: 20080716
  Receipt Date: 20080707
  Transmission Date: 20090109
  Serious: Yes (Other)
  Sender: FDA-Public Use
  Company Number: PHEH2008US06020

PATIENT
  Sex: Female

DRUGS (2)
  1. GLEEVEC [Suspect]
     Indication: ACUTE MYELOID LEUKAEMIA
     Dosage: 400 MG, QD
     Route: 048
  2. OXYCODONE HCL [Suspect]
     Dosage: UNK

REACTIONS (3)
  - AMNESIA [None]
  - COGNITIVE DISORDER [None]
  - DEMENTIA [None]
